FAERS Safety Report 6424662-2 (Version None)
Quarter: 2009Q4

REPORT INFORMATION
  Report Type: 
  Country: None (occurrence: None)
  Receive Date: 20091102
  Receipt Date: 20091102
  Transmission Date: 20100525
  Serious: No
  Sender: FDA-Public Use
  Company Number: None

PATIENT
  Age: 62 Year
  Sex: Male

DRUGS (1)
  1. PIROXICAM [Suspect]
     Indication: PAIN
     Dosage: 20 MG EVERY DAY PO
     Route: 048
     Dates: start: 20080528, end: 20090415

REACTIONS (1)
  - AGRANULOCYTOSIS [None]
